FAERS Safety Report 14372148 (Version 1)
Quarter: 2018Q1

REPORT INFORMATION
  Report Type: Spontaneous
  Country: US (occurrence: US)
  Receive Date: 20180110
  Receipt Date: 20180110
  Transmission Date: 20180509
  Serious: Yes (Hospitalization, Other)
  Sender: FDA-Public Use
  Company Number: US-PFIZER INC-2018006291

PATIENT
  Age: 27 Year
  Sex: Female

DRUGS (11)
  1. SECOBARBITAL [Concomitant]
     Active Substance: SECOBARBITAL
     Indication: PSYCHOTHERAPY
     Dosage: TWO TO THREE 0.1 GM AT NIGHT
  2. DEXTROAMPHETAMINE /00016601/ [Concomitant]
     Active Substance: DEXTROAMPHETAMINE
     Indication: PSYCHOTHERAPY
     Dosage: 10 MG, DAILY, SPANULES, EVERY MORNING
  3. PYRIDOXINE [Concomitant]
     Active Substance: PYRIDOXINE
     Indication: HYPOTENSION
     Dosage: 50 MG, 3X/DAY
     Route: 048
  4. NEOSTIGMINE [Concomitant]
     Active Substance: NEOSTIGMINE
     Indication: HYPOTENSION
     Dosage: UNK
     Route: 058
  5. CHLORPROMAZINE. [Concomitant]
     Active Substance: CHLORPROMAZINE
     Dosage: 25 MG, 3X/DAY
  6. NOREPINEPHRINE BITARTRATE. [Suspect]
     Active Substance: NOREPINEPHRINE BITARTRATE
     Indication: HYPOTENSION
     Dosage: 12 MG, UNK , (1,000 CC OF 5 PER CENT DEXTROSE IN WATER)
     Route: 042
     Dates: start: 19570703
  7. CHLORPROMAZINE. [Concomitant]
     Active Substance: CHLORPROMAZINE
     Indication: PSYCHOTHERAPY
     Dosage: 50 MG, 3X/DAY
  8. SECOBARBITAL [Concomitant]
     Active Substance: SECOBARBITAL
     Dosage: 0.2 G, 1X/DAY (EVERY EVENING)
  9. NOREPINEPHRINE BITARTRATE. [Suspect]
     Active Substance: NOREPINEPHRINE BITARTRATE
     Dosage: 4 MG, UNK (500 CC OF 5 PER CENT DEXTROSE IN WATER)
     Route: 042
     Dates: end: 19570709
  10. DEXTROSE. [Concomitant]
     Active Substance: DEXTROSE
     Dosage: UNK (500 CC OF 5 PER CENT DEXTROSE IN WATER)
     Route: 042
     Dates: end: 19570709
  11. DEXTROSE. [Concomitant]
     Active Substance: DEXTROSE
     Indication: VEHICLE SOLUTION USE
     Dosage: UNK (1,000 CC OF 5 PER CENT DEXTROSE IN WATER)
     Route: 042
     Dates: start: 19570703

REACTIONS (1)
  - Myocarditis [Recovered/Resolved]

NARRATIVE: CASE EVENT DATE: 19570710
